FAERS Safety Report 14133226 (Version 2)
Quarter: 2017Q4

REPORT INFORMATION
  Report Type: Spontaneous
  Country: US (occurrence: US)
  Receive Date: 20171026
  Receipt Date: 20171110
  Transmission Date: 20180321
  Serious: No
  Sender: FDA-Public Use
  Company Number: US-ACTELION-A-NJ2017-161536

PATIENT
  Age: 53 Year
  Sex: Female

DRUGS (7)
  1. MUCINEX [Concomitant]
     Active Substance: GUAIFENESIN
  2. ALBUTEROL. [Concomitant]
     Active Substance: ALBUTEROL
  3. LASIX [Concomitant]
     Active Substance: FUROSEMIDE
  4. AMBRISENTAN [Suspect]
     Active Substance: AMBRISENTAN
     Indication: PRODUCT USED FOR UNKNOWN INDICATION
     Dosage: 5 MG, QD
     Route: 048
     Dates: start: 20170616, end: 2017
  5. NASACORT [Concomitant]
     Active Substance: TRIAMCINOLONE ACETONIDE
  6. ALDACTONE [Concomitant]
     Active Substance: SPIRONOLACTONE
  7. VELETRI [Suspect]
     Active Substance: EPOPROSTENOL
     Indication: PRODUCT USED FOR UNKNOWN INDICATION
     Dosage: 10.25 NG/KG, PER MIN
     Route: 042

REACTIONS (3)
  - Head discomfort [Unknown]
  - Malaise [Unknown]
  - Sinusitis [Not Recovered/Not Resolved]

NARRATIVE: CASE EVENT DATE: 20171006
